FAERS Safety Report 9372264 (Version 1)
Quarter: 2013Q2

REPORT INFORMATION
  Report Type: Report from Study
  Country: US (occurrence: US)
  Receive Date: 20130627
  Receipt Date: 20130627
  Transmission Date: 20140414
  Serious: Yes (Other)
  Sender: FDA-Public Use
  Company Number: US-MYLANLABS-2012S1018695

PATIENT
  Age: 18 Year
  Sex: Male
  Weight: 77.11 kg

DRUGS (7)
  1. CLOZAPINE TABLETS [Suspect]
     Indication: SCHIZOPHRENIA
     Route: 048
     Dates: start: 20120831, end: 20120901
  2. ABILIFY [Concomitant]
  3. LEXAPRO [Concomitant]
  4. LAMOTRIGINE [Concomitant]
     Route: 048
  5. GUANFACINE [Concomitant]
  6. ATIVAN [Concomitant]
  7. ZYPREXA [Concomitant]
     Route: 048

REACTIONS (1)
  - Granulocytopenia [Not Recovered/Not Resolved]
